FAERS Safety Report 19492834 (Version 4)
Quarter: 2022Q1

REPORT INFORMATION
  Report Type: Report from Study
  Country: FR (occurrence: FR)
  Receive Date: 20210705
  Receipt Date: 20220329
  Transmission Date: 20220424
  Serious: Yes (Death, Other)
  Sender: FDA-Public Use
  Company Number: FR-SHIRE-SPV1-2011-00125

PATIENT
  Age: 11 Year
  Sex: Male
  Weight: 35 kg

DRUGS (6)
  1. ELAPRASE [Suspect]
     Active Substance: IDURSULFASE
     Indication: Mucopolysaccharidosis II
     Dosage: 24 MG, 1X/WEEK
     Route: 041
     Dates: start: 20060922
  2. ELAPRASE [Suspect]
     Active Substance: IDURSULFASE
     Dosage: 0.55 MILLIGRAM/KILOGRAM
     Route: 042
     Dates: start: 20061222
  3. ELAPRASE [Suspect]
     Active Substance: IDURSULFASE
     Dosage: 0.56 MILLIGRAM/KILOGRAM
     Route: 042
     Dates: start: 20071108
  4. ELAPRASE [Suspect]
     Active Substance: IDURSULFASE
     Dosage: 0.51 MILLIGRAM/KILOGRAM
     Route: 042
     Dates: start: 20081120
  5. ELAPRASE [Suspect]
     Active Substance: IDURSULFASE
     Dosage: 0.5 MILLIGRAM/KILOGRAM
     Route: 042
     Dates: start: 20091001, end: 20100810
  6. OXYCODONE [Concomitant]
     Active Substance: OXYCODONE
     Indication: Pain
     Dosage: UNK UNK, UNKNOWN
     Route: 065
     Dates: start: 20100720, end: 20101208

REACTIONS (4)
  - Respiratory arrest [Fatal]
  - Cardiac failure [Fatal]
  - Cardiac arrest [Fatal]
  - Mucopolysaccharidosis II [Fatal]

NARRATIVE: CASE EVENT DATE: 20101208
